FAERS Safety Report 6687870-1 (Version None)
Quarter: 2010Q2

REPORT INFORMATION
  Report Type: 
  Country: None (occurrence: None)
  Receive Date: 20100409
  Receipt Date: 20100202
  Transmission Date: 20101027
  Serious: Yes (Other)
  Sender: FDA-Public Use
  Company Number: AE  2010-008

PATIENT
  Age: 52 Year
  Sex: Female
  Weight: 72.5755 kg

DRUGS (11)
  1. FAZACLO ODT [Suspect]
     Indication: SCHIZOAFFECTIVE DISORDER
     Dosage: 150MG - 450MG DAILY PO
     Route: 048
     Dates: start: 20080529, end: 20100108
  2. IRON [Concomitant]
  3. ULTRAM [Concomitant]
  4. MULTI-VITAMIN [Concomitant]
  5. VITAMIN D [Concomitant]
  6. PERIACTIN [Concomitant]
  7. KEPPRA [Concomitant]
  8. LEXAPRO [Concomitant]
  9. DEPAKOTE ER [Concomitant]
  10. COGENTIN [Concomitant]
  11. VISTARIL [Concomitant]

REACTIONS (1)
  - AGRANULOCYTOSIS [None]
